FAERS Safety Report 22343241 (Version 1)
Quarter: 2023Q2

REPORT INFORMATION
  Report Type: Spontaneous
  Country: US (occurrence: US)
  Receive Date: 20230519
  Receipt Date: 20230519
  Transmission Date: 20230722
  Serious: No
  Sender: FDA-Public Use
  Company Number: US-GSKCCFUS-Case-01701362_AE-96046

PATIENT
  Age: 76 Year
  Sex: Female

DRUGS (2)
  1. TRELEGY ELLIPTA [Suspect]
     Active Substance: FLUTICASONE FUROATE\UMECLIDINIUM BROMIDE\VILANTEROL TRIFENATATE
     Indication: Product used for unknown indication
     Dosage: 1 PUFF(S), QD,  200/62.5/25 MCG
     Route: 055
     Dates: start: 20230501
  2. ABREVA [Suspect]
     Active Substance: DOCOSANOL
     Indication: Oral herpes
     Dosage: UNK

REACTIONS (3)
  - Lip dry [Unknown]
  - Dry mouth [Unknown]
  - Oral herpes [Unknown]

NARRATIVE: CASE EVENT DATE: 20230501
